FAERS Safety Report 20545926 (Version 7)
Quarter: 2022Q2

REPORT INFORMATION
  Report Type: Report from Study
  Country: US (occurrence: US)
  Receive Date: 20220303
  Receipt Date: 20220528
  Transmission Date: 20220721
  Serious: Yes (Other)
  Sender: FDA-Public Use
  Company Number: US-NOVARTISTESTPH-NVSC2022US050571

PATIENT
  Sex: Female

DRUGS (4)
  1. ENTRESTO [Suspect]
     Active Substance: SACUBITRIL\VALSARTAN
     Indication: Cardiac failure chronic
     Dosage: 200 MG, BID (97/103 MG)
     Route: 048
  2. ENTRESTO [Suspect]
     Active Substance: SACUBITRIL\VALSARTAN
     Dosage: 50 MG, BID (24/26 MG)
     Route: 048
  3. ENTRESTO [Suspect]
     Active Substance: SACUBITRIL\VALSARTAN
     Route: 048
  4. JARDIANCE [Suspect]
     Active Substance: EMPAGLIFLOZIN
     Indication: Product used for unknown indication
     Dosage: UNK
     Route: 065

REACTIONS (13)
  - Hypotonic urinary bladder [Unknown]
  - Palpitations [Unknown]
  - Stress [Unknown]
  - Hypertension [Unknown]
  - Anal haemorrhage [Unknown]
  - Arthralgia [Unknown]
  - Hypoaesthesia [Unknown]
  - Depressed mood [Unknown]
  - Asthenia [Unknown]
  - Large intestine polyp [Unknown]
  - Blood pressure decreased [Unknown]
  - Fatigue [Unknown]
  - Wrong technique in product usage process [Not Recovered/Not Resolved]
